FAERS Safety Report 11904771 (Version 1)
Quarter: 2016Q1

REPORT INFORMATION
  Report Type: Spontaneous
  Country: US (occurrence: US)
  Receive Date: 20160108
  Receipt Date: 20160108
  Transmission Date: 20160526
  Serious: Yes (Life-Threatening, Other)
  Sender: FDA-Public Use
  Company Number: US-ROCHE-1482765

PATIENT
  Age: 58 Year
  Sex: Female
  Weight: 51.4 kg

DRUGS (3)
  1. ACTIVASE [Suspect]
     Active Substance: ALTEPLASE
     Indication: CEREBROVASCULAR ACCIDENT
     Route: 042
  2. ACTIVASE [Suspect]
     Active Substance: ALTEPLASE
     Dosage: FREQUENCY: 1 OVER 1 HOUR
     Route: 042
     Dates: start: 20141015, end: 20141015
  3. NARCAN [Concomitant]
     Active Substance: NALOXONE HYDROCHLORIDE
     Dosage: STOPPED AT 09:53 AM
     Route: 042
     Dates: start: 20141015

REACTIONS (4)
  - Cerebral haemorrhage [Unknown]
  - Haemorrhage intracranial [Not Recovered/Not Resolved]
  - Headache [Unknown]
  - Somnolence [Unknown]

NARRATIVE: CASE EVENT DATE: 20141015
